FAERS Safety Report 15869573 (Version 1)
Quarter: 2019Q1

REPORT INFORMATION
  Report Type: Spontaneous
  Country: CA (occurrence: CA)
  Receive Date: 20190125
  Receipt Date: 20190125
  Transmission Date: 20190417
  Serious: Yes (Death, Life-Threatening, Hospitalization)
  Sender: FDA-Public Use
  Company Number: PHHY2019CA017580

PATIENT
  Age: 67 Year
  Sex: Male

DRUGS (3)
  1. LOVENOX [Concomitant]
     Active Substance: ENOXAPARIN SODIUM
     Indication: PRODUCT USED FOR UNKNOWN INDICATION
     Dosage: UNK
     Route: 058
  2. HEPARIN SODIUM. [Suspect]
     Active Substance: HEPARIN SODIUM
     Dosage: 50000.0 U, (TOTAL)
     Route: 065
  3. HEPARIN SODIUM. [Suspect]
     Active Substance: HEPARIN SODIUM
     Indication: PRODUCT USED FOR UNKNOWN INDICATION
     Dosage: 5000.0 U, Q12H
     Route: 058

REACTIONS (7)
  - Platelet disorder [Fatal]
  - Sepsis [Fatal]
  - Abdominal pain upper [Fatal]
  - Heparin-induced thrombocytopenia [Fatal]
  - Lethargy [Fatal]
  - Renal failure [Fatal]
  - Intestinal infarction [Fatal]
